FAERS Safety Report 7618542-4 (Version None)
Quarter: 2011Q3

REPORT INFORMATION
  Report Type: 
  Country: None (occurrence: None)
  Receive Date: 20110718
  Receipt Date: 20110714
  Transmission Date: 20111222
  Serious: Yes (Death, Hospitalization)
  Sender: FDA-Public Use
  Company Number: US-B.I. PHARMACEUTICALS,INC./RIDGEFIELD-2010-BP-12135BP

PATIENT
  Age: 34 Year
  Sex: Male
  Weight: 70.3 kg

DRUGS (10)
  1. VALCYTE [Concomitant]
     Indication: CYTOMEGALOVIRUS INFECTION
  2. DIFLUCAN [Concomitant]
     Indication: ORAL CANDIDIASIS
     Dosage: 100 G
     Dates: start: 20101026, end: 20101028
  3. APTIVUS [Suspect]
     Indication: HIV INFECTION
     Dosage: 1000
     Dates: start: 20100701
  4. NORVASC [Concomitant]
     Indication: HYPERTENSION
     Dates: start: 20100701
  5. MEGACE [Concomitant]
     Indication: DECREASED APPETITE
     Dosage: 10 ML
  6. TRUVADA [Concomitant]
     Indication: HIV INFECTION
     Dates: start: 20100701
  7. NOVOLOG [Concomitant]
     Indication: TYPE 1 DIABETES MELLITUS
  8. APTIVUS [Suspect]
     Indication: ACQUIRED IMMUNODEFICIENCY SYNDROME
  9. ZITHROMAX [Concomitant]
     Indication: PROPHYLAXIS
  10. LANTUS [Concomitant]
     Indication: TYPE 1 DIABETES MELLITUS

REACTIONS (1)
  - HAEMORRHAGE INTRACRANIAL [None]
